FAERS Safety Report 18206728 (Version 1)
Quarter: 2020Q3

REPORT INFORMATION
  Report Type: Spontaneous
  Country: US (occurrence: US)
  Receive Date: 20200827
  Receipt Date: 20200827
  Transmission Date: 20201103
  Serious: Yes (Hospitalization, Other)
  Sender: FDA-Public Use
  Company Number: None

PATIENT
  Age: 30 Year
  Sex: Female
  Weight: 82 kg

DRUGS (2)
  1. FERRLECIT [Concomitant]
     Active Substance: SODIUM FERRIC GLUCONATE COMPLEX
     Dates: start: 20200811, end: 20200827
  2. FERRLECIT [Suspect]
     Active Substance: SODIUM FERRIC GLUCONATE COMPLEX
     Indication: IRON DEFICIENCY ANAEMIA
     Dosage: ?          OTHER FREQUENCY:WEEKLY;?
     Route: 041
     Dates: start: 20200811, end: 20200827

REACTIONS (5)
  - Foetal exposure during pregnancy [None]
  - Exposure during pregnancy [None]
  - Nausea [None]
  - Vomiting [None]
  - Foetal heart rate deceleration abnormality [None]

NARRATIVE: CASE EVENT DATE: 20200827
